FAERS Safety Report 14666450 (Version 2)
Quarter: 2018Q2

REPORT INFORMATION
  Report Type: Report from Study
  Country: US (occurrence: US)
  Receive Date: 20180321
  Receipt Date: 20180518
  Transmission Date: 20180711
  Serious: No
  Sender: FDA-Public Use
  Company Number: PHEH2018US010957

PATIENT
  Sex: Male

DRUGS (1)
  1. ENTRESTO [Suspect]
     Active Substance: SACUBITRIL\VALSARTAN
     Indication: PRODUCT USED FOR UNKNOWN INDICATION
     Dosage: UNK, BID
     Route: 048

REACTIONS (6)
  - Asthenia [Unknown]
  - Productive cough [Unknown]
  - Weight decreased [Recovering/Resolving]
  - Memory impairment [Unknown]
  - Emotional distress [Unknown]
  - Depression [Unknown]
